FAERS Safety Report 10573701 (Version 1)
Quarter: 2014Q4

REPORT INFORMATION
  Report Type: Spontaneous
  Country: PR (occurrence: PR)
  Receive Date: 20141110
  Receipt Date: 20141110
  Transmission Date: 20150529
  Serious: Yes (Death, Hospitalization)
  Sender: FDA-Public Use
  Company Number: PR-BAXTER-2014BAX066361

PATIENT
  Age: 64 Year
  Sex: Male

DRUGS (18)
  1. BICARBONATE [Suspect]
     Active Substance: BICARBONATE ION
     Indication: LEPTOSPIROSIS
     Route: 065
     Dates: start: 201112
  2. BICARBONATE [Suspect]
     Active Substance: BICARBONATE ION
     Indication: THROMBOCYTOPENIA
  3. RANITIDINE [Suspect]
     Active Substance: RANITIDINE\RANITIDINE HYDROCHLORIDE
     Indication: ACUTE KIDNEY INJURY
  4. SIMVASTATIN. [Concomitant]
     Active Substance: SIMVASTATIN
     Indication: PRODUCT USED FOR UNKNOWN INDICATION
     Route: 065
  5. OSMITROL [Suspect]
     Active Substance: MANNITOL
     Indication: ACUTE KIDNEY INJURY
  6. CEFTRIAXONE INJECTION, USP GALAXY SINGLE DOSE CONTAINER [Suspect]
     Active Substance: CEFTRIAXONE
     Indication: LEPTOSPIROSIS
     Route: 065
     Dates: start: 201112
  7. CEFTRIAXONE INJECTION, USP GALAXY SINGLE DOSE CONTAINE R [Suspect]
     Active Substance: CEFTRIAXONE
     Indication: ACUTE KIDNEY INJURY
  8. OSMITROL [Suspect]
     Active Substance: MANNITOL
     Indication: LEPTOSPIROSIS
     Route: 065
     Dates: start: 201112
  9. CEFTRIAXONE INJECTION, USP GALAXY SINGLE DOSE CONTAINER [Suspect]
     Active Substance: CEFTRIAXONE
     Indication: THROMBOCYTOPENIA
  10. RANITIDINE [Suspect]
     Active Substance: RANITIDINE\RANITIDINE HYDROCHLORIDE
     Indication: THROMBOCYTOPENIA
  11. OSMITROL [Suspect]
     Active Substance: MANNITOL
     Indication: THROMBOCYTOPENIA
  12. BICARBONATE [Suspect]
     Active Substance: BICARBONATE ION
     Indication: ACUTE KIDNEY INJURY
  13. DOCUSATE [Suspect]
     Active Substance: DOCUSATE
     Indication: ACUTE KIDNEY INJURY
  14. DOCUSATE [Suspect]
     Active Substance: DOCUSATE
     Indication: THROMBOCYTOPENIA
  15. GLUCOSAMINE [Concomitant]
     Active Substance: GLUCOSAMINE
     Indication: PRODUCT USED FOR UNKNOWN INDICATION
     Route: 065
  16. DOCUSATE [Suspect]
     Active Substance: DOCUSATE
     Indication: LEPTOSPIROSIS
     Route: 065
     Dates: start: 201112
  17. RANITIDINE [Suspect]
     Active Substance: RANITIDINE\RANITIDINE HYDROCHLORIDE
     Indication: LEPTOSPIROSIS
     Route: 065
     Dates: start: 201112
  18. ACETAMINOPHEN. [Concomitant]
     Active Substance: ACETAMINOPHEN
     Indication: PRODUCT USED FOR UNKNOWN INDICATION
     Route: 065

REACTIONS (8)
  - Haemorrhage [None]
  - Septic shock [Fatal]
  - Aggression [None]
  - Haemodialysis [None]
  - Metabolic acidosis [Not Recovered/Not Resolved]
  - Cardiac failure congestive [None]
  - Respiratory acidosis [Not Recovered/Not Resolved]
  - Haematocrit decreased [None]
